FAERS Safety Report 11265047 (Version 1)
Quarter: 2015Q3

REPORT INFORMATION
  Report Type: Spontaneous
  Country: US (occurrence: None)
  Receive Date: 20150710
  Receipt Date: 20150710
  Transmission Date: 20151125
  Serious: No
  Sender: FDA-Public Use
  Company Number: None

PATIENT
  Age: 31 Year
  Sex: Female
  Weight: 52.62 kg

DRUGS (4)
  1. EFFEXOR XR [Suspect]
     Active Substance: VENLAFAXINE HYDROCHLORIDE
     Indication: MIGRAINE PROPHYLAXIS
     Dosage: 37.5, 75MG/1 EACH ONCE DAILY TAKEN BY MOUTH
     Route: 048
     Dates: start: 20140704, end: 20150225
  2. AZURETTE [Concomitant]
     Active Substance: DESOGESTREL\ETHINYL ESTRADIOL
  3. NORATRIPTAN [Concomitant]
  4. MAXALT [Concomitant]
     Active Substance: RIZATRIPTAN BENZOATE

REACTIONS (2)
  - Alcoholism [None]
  - Binge drinking [None]

NARRATIVE: CASE EVENT DATE: 20150211
